FAERS Safety Report 4988536-6 (Version None)
Quarter: 2006Q2

REPORT INFORMATION
  Report Type: 
  Country: None (occurrence: None)
  Receive Date: 20060502
  Receipt Date: 20060216
  Transmission Date: 20061013
  Serious: Yes (Hospitalization)
  Sender: FDA-Public Use
  Company Number: CA-GLAXOSMITHKLINE-A0594240A

PATIENT
  Age: 57 Year
  Sex: Male
  Weight: 114 kg

DRUGS (5)
  1. AVANDIA [Suspect]
     Dosage: 4MG PER DAY
     Route: 048
     Dates: start: 20010402, end: 20010518
  2. ENALAPRIL MALEATE [Concomitant]
     Dosage: 2.5MG TWICE PER DAY
  3. DIABETA [Concomitant]
     Dosage: 10MG TWICE PER DAY
  4. ATENOLOL [Concomitant]
     Dosage: 25MG TWICE PER DAY
  5. LIPITOR [Concomitant]
     Dosage: 20MG PER DAY
     Dates: start: 20000101

REACTIONS (5)
  - CARDIAC FAILURE CONGESTIVE [None]
  - GENERALISED OEDEMA [None]
  - OEDEMA GENITAL [None]
  - URINARY RETENTION [None]
  - VENTRICULAR DYSFUNCTION [None]
